FAERS Safety Report 4391013-7 (Version None)
Quarter: 2004Q2

REPORT INFORMATION
  Report Type: 
  Country: None (occurrence: None)
  Receive Date: 20040628
  Receipt Date: 20040615
  Transmission Date: 20050107
  Serious: Yes (Death)
  Sender: FDA-Public Use
  Company Number: CART-10293

PATIENT
  Age: 22 Year
  Sex: Male
  Weight: 108.8633 kg

DRUGS (2)
  1. CARTICEL [Suspect]
     Indication: CHONDROPATHY
     Dosage: 1 NA ONCE IS
     Dates: start: 20031029, end: 20031029
  2. CARTICEL [Suspect]
     Indication: CHONDROPATHY
     Dosage: 1 NA ONCE IS
     Dates: start: 20011227, end: 20011227

REACTIONS (8)
  - ACCIDENT [None]
  - BRAIN OEDEMA [None]
  - CARDIAC ARREST [None]
  - INADEQUATE ANALGESIA [None]
  - POST PROCEDURAL PAIN [None]
  - PRURITUS [None]
  - SNORING [None]
  - THERAPEUTIC AGENT TOXICITY [None]
